FAERS Safety Report 5671043-5 (Version None)
Quarter: 2008Q1

REPORT INFORMATION
  Report Type: 
  Country: None (occurrence: None)
  Receive Date: 20080317
  Receipt Date: 20080317
  Transmission Date: 20080703
  Serious: Yes (Other)
  Sender: FDA-Public Use
  Company Number: None

PATIENT
  Sex: Male

DRUGS (14)
  1. NOVOSEVEN [Suspect]
     Dosage: 0.12MG X1 IV
     Route: 042
     Dates: start: 20080311
  2. VASOPRESSIN [Concomitant]
  3. DOPAMINE HCL [Concomitant]
  4. DOBUTAMINE HCL [Concomitant]
  5. VECURONIUM BROMIDE [Concomitant]
  6. VANCOMYCIN [Concomitant]
  7. CEFTAZIDIME SODIUM [Concomitant]
  8. CLINDAMYCIN HCL [Concomitant]
  9. CALCIUM CHLORIDE [Concomitant]
  10. FENTANYL [Concomitant]
  11. LASIX [Concomitant]
  12. HYDROCORTISONE [Concomitant]
  13. INSULIN [Concomitant]
  14. IOVERSOL [Concomitant]

REACTIONS (5)
  - BLOOD POTASSIUM INCREASED [None]
  - CYANOSIS [None]
  - HYPERTENSION [None]
  - HYPOTENSION [None]
  - VENTRICULAR TACHYCARDIA [None]
